FAERS Safety Report 8576678-8 (Version None)
Quarter: 2012Q3

REPORT INFORMATION
  Report Type: 
  Country: None (occurrence: None)
  Receive Date: 20120807
  Receipt Date: 20120730
  Transmission Date: 20120928
  Serious: Yes (Hospitalization)
  Sender: FDA-Public Use
  Company Number: US-GLAXOSMITHKLINE-A0724614A

PATIENT
  Age: 52 Year
  Sex: Female
  Weight: 101.8 kg

DRUGS (8)
  1. TRIAMTERENE AND HYDROCHLOROTHIAZIDE [Concomitant]
  2. METFORMIN HYDROCHLORIDE [Concomitant]
  3. MEDROXYPROGESTERONE [Concomitant]
  4. LISINOPRIL [Concomitant]
  5. AVANDAMET [Suspect]
     Indication: DIABETES MELLITUS
     Route: 048
     Dates: start: 20041102, end: 20050322
  6. GLYBURIDE [Concomitant]
  7. AVANDIA [Suspect]
     Indication: DIABETES MELLITUS
     Dosage: 4MG PER DAY
     Route: 048
     Dates: start: 20050602, end: 20070929
  8. VITAMIN TAB [Concomitant]

REACTIONS (1)
  - MYOCARDIAL INFARCTION [None]
